FAERS Safety Report 5960992-6 (Version None)
Quarter: 2008Q4

REPORT INFORMATION
  Report Type: 
  Country: None (occurrence: None)
  Receive Date: 20081119
  Receipt Date: 20081113
  Transmission Date: 20090506
  Serious: Yes (Life-Threatening, Hospitalization, Other)
  Sender: FDA-Public Use
  Company Number: TAP2008Q00969

PATIENT
  Age: 53 Year
  Sex: Female

DRUGS (4)
  1. PREVACID [Suspect]
     Indication: DRUG USE FOR UNKNOWN INDICATION
  2. PAXIL [Suspect]
     Indication: DRUG USE FOR UNKNOWN INDICATION
  3. LYRICA [Suspect]
     Indication: DRUG USE FOR UNKNOWN INDICATION
  4. CYMBALTA [Suspect]
     Dates: end: 20081004

REACTIONS (4)
  - AGGRESSION [None]
  - HOMICIDAL IDEATION [None]
  - PERSONALITY CHANGE [None]
  - SUICIDE ATTEMPT [None]
